FAERS Safety Report 8351437-X (Version None)
Quarter: 2012Q2

REPORT INFORMATION
  Report Type: 
  Country: None (occurrence: None)
  Receive Date: 20120510
  Receipt Date: 20120508
  Transmission Date: 20120825
  Serious: Yes (Death)
  Sender: FDA-Public Use
  Company Number: ES-ROCHE-723175

PATIENT
  Sex: Female
  Weight: 57 kg

DRUGS (6)
  1. OXALIPLATIN [Suspect]
     Indication: COLORECTAL CANCER
     Dosage: LAST DOSE PRIOR TO SAE ON 19 JUL 2010; PERMANENTLY STOPPED
     Route: 042
     Dates: start: 20100607, end: 20100719
  2. PANTOPRAZOLE [Concomitant]
     Dosage: TOTAL DOSE: 1 COMP.
  3. XELODA [Suspect]
     Indication: COLORECTAL CANCER
     Dosage: DAYS 2 -15; LAST DOSE PRIOR TO SAE ON 01 AUG 2010; PERMANENTLY DISCONTINUED
     Route: 048
     Dates: start: 20100608, end: 20100801
  4. IBUPROFEN [Concomitant]
  5. AVASTIN [Suspect]
     Indication: COLORECTAL CANCER
     Dosage: LAST DOSE PRIOR TO SAE ON 19 JUL 2010; PERMANENTLY STOPPED
     Route: 042
     Dates: start: 20100607, end: 20100719
  6. AERO RED [Concomitant]

REACTIONS (1)
  - PULMONARY EMBOLISM [None]
